FAERS Safety Report 4412167-X (Version None)
Quarter: 2004Q2

REPORT INFORMATION
  Report Type: 
  Country: None (occurrence: None)
  Receive Date: 20040630
  Receipt Date: 20040510
  Transmission Date: 20050107
  Serious: No
  Sender: FDA-Public Use
  Company Number: 04P-163-0260138-00

PATIENT
  Age: 17 Year
  Sex: Female
  Weight: 53.5244 kg

DRUGS (5)
  1. HUMIRA [Suspect]
     Indication: LICHEN PLANUS
     Dosage: 40 MG, 1 IN 1 WK, SUBCUTANEOUS
     Route: 058
     Dates: start: 20030501
  2. DOXYCYCLINE [Concomitant]
  3. ROXITHROMYCIN [Concomitant]
  4. TACROLIMUS [Concomitant]
  5. HYDROCORTISONE VALERATE [Concomitant]

REACTIONS (1)
  - INJECTION SITE BURNING [None]
